FAERS Safety Report 9878567 (Version 2)
Quarter: 2014Q1

REPORT INFORMATION
  Report Type: Spontaneous
  Country: US (occurrence: US)
  Receive Date: 20140206
  Receipt Date: 20140206
  Transmission Date: 20141002
  Serious: No
  Sender: FDA-Public Use
  Company Number: US-ALLERGAN-1312288US

PATIENT
  Age: 50 Year
  Sex: Female

DRUGS (2)
  1. BOTOX COSMETIC [Suspect]
     Indication: SKIN WRINKLING
     Dosage: UNK
     Dates: start: 20130718, end: 20130718
  2. JUVEDERM ULTRA XC [Suspect]
     Indication: PRODUCT USED FOR UNKNOWN INDICATION

REACTIONS (3)
  - Lip swelling [Recovering/Resolving]
  - Swelling face [Recovering/Resolving]
  - Off label use [Unknown]
